FAERS Safety Report 20640758 (Version 1)
Quarter: 2022Q1

REPORT INFORMATION
  Report Type: Spontaneous
  Country: US (occurrence: US)
  Receive Date: 20220327
  Receipt Date: 20220327
  Transmission Date: 20220423
  Serious: No
  Sender: FDA-Public Use
  Company Number: US-SA-SAC20220323000057

PATIENT
  Sex: Female

DRUGS (17)
  1. AUBAGIO [Suspect]
     Active Substance: TERIFLUNOMIDE
     Indication: Multiple sclerosis
     Dosage: 1 DF, QD
     Route: 048
  2. AMLODIPINE [Concomitant]
     Active Substance: AMLODIPINE BESYLATE
  3. ARMODAFINIL [Concomitant]
     Active Substance: ARMODAFINIL
  4. BUPROPION HYDROCHLORIDE [Concomitant]
     Active Substance: BUPROPION HYDROCHLORIDE
  5. HETLIOZ [Concomitant]
     Active Substance: TASIMELTEON
  6. LORATADINE [Concomitant]
     Active Substance: LORATADINE
  7. METOPROLOL [Concomitant]
     Active Substance: METOPROLOL
  8. MONTELUKAST [Concomitant]
     Active Substance: MONTELUKAST SODIUM
  9. MUPIROCIN [Concomitant]
     Active Substance: MUPIROCIN
  10. MYRBETRIQ [Concomitant]
     Active Substance: MIRABEGRON
  11. NABUMETONE [Concomitant]
     Active Substance: NABUMETONE
  12. NEOMYCIN [Concomitant]
     Active Substance: NEOMYCIN
  13. OMEPRAZOLE [Concomitant]
     Active Substance: OMEPRAZOLE
  14. PREDNISONE [Concomitant]
     Active Substance: PREDNISONE
  15. TIZANIDINE [Concomitant]
     Active Substance: TIZANIDINE
  16. TOLTERODINE [Concomitant]
     Active Substance: TOLTERODINE
  17. HYDROCHLOROTHIAZIDE [Concomitant]
     Active Substance: HYDROCHLOROTHIAZIDE

REACTIONS (1)
  - Diarrhoea [Not Recovered/Not Resolved]
